FAERS Safety Report 17771419 (Version 1)
Quarter: 2020Q2

REPORT INFORMATION
  Report Type: Spontaneous
  Country: US (occurrence: US)
  Receive Date: 20200512
  Receipt Date: 20200512
  Transmission Date: 20200714
  Serious: Yes (Death, Life-Threatening, Hospitalization)
  Sender: FDA-Public Use
  Company Number: US-TEVA-2020-US-1234053

PATIENT
  Age: 68 Year
  Sex: Female

DRUGS (1)
  1. METHOTREXATE. [Suspect]
     Active Substance: METHOTREXATE
     Indication: RHEUMATOID ARTHRITIS
     Dosage: STARTING AND MAXIMAL DOSE
     Route: 065

REACTIONS (5)
  - Thrombocytopenia [Unknown]
  - Hypoalbuminaemia [Fatal]
  - Toxicity to various agents [Fatal]
  - Epidermal necrosis [Fatal]
  - Leukopenia [Unknown]
